FAERS Safety Report 25732047 (Version 1)
Quarter: 2025Q3

REPORT INFORMATION
  Report Type: Spontaneous
  Country: US (occurrence: None)
  Receive Date: 20250827
  Receipt Date: 20250827
  Transmission Date: 20251020
  Serious: Yes (Other)
  Sender: FDA-CTU
  Company Number: None

PATIENT
  Sex: Female
  Weight: 65.25 kg

DRUGS (5)
  1. LEVOCETIRIZINE [Suspect]
     Active Substance: LEVOCETIRIZINE
     Indication: Seasonal allergy
  2. LORATADINE [Suspect]
     Active Substance: LORATADINE
  3. FEXOFENADINE [Suspect]
     Active Substance: FEXOFENADINE HYDROCHLORIDE
  4. VITAMIN D [Concomitant]
     Active Substance: VITAMIN D NOS
  5. Iron + Vitamin C [Concomitant]

REACTIONS (20)
  - Drug ineffective [None]
  - Brain fog [None]
  - Mental impairment [None]
  - Activities of daily living decreased [None]
  - Bradyphrenia [None]
  - Sensory disturbance [None]
  - Coordination abnormal [None]
  - Balance disorder [None]
  - Swelling [None]
  - Fatigue [None]
  - Bowel movement irregularity [None]
  - Abdominal discomfort [None]
  - Abdominal distension [None]
  - Fatigue [None]
  - Pain in extremity [None]
  - Pain in extremity [None]
  - Pruritus [None]
  - Scratch [None]
  - Contusion [None]
  - Chest discomfort [None]
